FAERS Safety Report 9386653 (Version 1)
Quarter: 2013Q3

REPORT INFORMATION
  Report Type: Report from Study
  Country: BR (occurrence: BR)
  Receive Date: 20130708
  Receipt Date: 20130708
  Transmission Date: 20140515
  Serious: Yes (Other)
  Sender: FDA-Public Use
  Company Number: PHHY2013BR071934

PATIENT
  Sex: Male
  Weight: 73 kg

DRUGS (2)
  1. GILENYA [Suspect]
     Indication: MULTIPLE SCLEROSIS
     Dosage: 1 DF, QD
     Route: 048
     Dates: start: 20130621
  2. RIVOTRIL [Concomitant]
     Dosage: UNK

REACTIONS (3)
  - Tachycardia [Recovered/Resolved]
  - Feeling abnormal [Recovered/Resolved]
  - Sedation [Recovered/Resolved]
